FAERS Safety Report 8720758 (Version 3)
Quarter: 2012Q4

REPORT INFORMATION
  Report Type: 
  Country: DE (occurrence: DE)
  Receive Date: 20120813
  Receipt Date: 20121227
  Transmission Date: 20130627
  Serious: Yes (Other)
  Sender: FDA-Public Use
  Company Number: DE-ROCHE-1099935

PATIENT
  Age: 67 Year
  Sex: Female

DRUGS (3)
  1. LUCENTIS [Suspect]
     Indication: MACULAR DEGENERATION
     Route: 050
     Dates: start: 201009
  2. LUCENTIS [Suspect]
     Route: 050
     Dates: start: 201201
  3. LUCENTIS [Suspect]
     Route: 050
     Dates: start: 201102

REACTIONS (3)
  - Psoriasis [Not Recovered/Not Resolved]
  - Actinic keratosis [Unknown]
  - Bowen^s disease [Unknown]
